FAERS Safety Report 6928217-2 (Version None)
Quarter: 2010Q3

REPORT INFORMATION
  Report Type: 
  Country: None (occurrence: None)
  Receive Date: 20100808
  Receipt Date: 20090901
  Transmission Date: 20110219
  Serious: Yes (Other)
  Sender: FDA-Public Use
  Company Number: 208013USA

PATIENT
  Sex: Male

DRUGS (1)
  1. CHLORDIAZEPOXIDE HYDROCHLORIDE 10MG CAP [Suspect]
     Dosage: 5 MG, ORAL
     Route: 048

REACTIONS (3)
  - DIZZINESS [None]
  - MUSCULAR WEAKNESS [None]
  - PARKINSONISM [None]
